FAERS Safety Report 4663048-8 (Version None)
Quarter: 2005Q2

REPORT INFORMATION
  Report Type: 
  Country: None (occurrence: None)
  Receive Date: 20050513
  Receipt Date: 20050509
  Transmission Date: 20051028
  Serious: Yes (Life-Threatening, Hospitalization, Other)
  Sender: FDA-Public Use
  Company Number: 2005-04-1926

PATIENT
  Age: 56 Year
  Sex: Female

DRUGS (5)
  1. TEMODAL [Suspect]
     Indication: GLIOBLASTOMA
     Dosage: 300 MG/M^2; ORAL
     Route: 048
     Dates: start: 20050330, end: 20050402
  2. NEURONTIN [Concomitant]
  3. SOLUPRED [Concomitant]
  4. OMEPRAZOLE [Concomitant]
  5. LEXOMIL (BROMAZEPAM) [Concomitant]

REACTIONS (7)
  - ALOPECIA [None]
  - BONE MARROW DEPRESSION [None]
  - MUCOSAL INFLAMMATION [None]
  - PANCYTOPENIA [None]
  - PYREXIA [None]
  - RASH ERYTHEMATOUS [None]
  - RASH MACULAR [None]
